FAERS Safety Report 7115933-5 (Version None)
Quarter: 2010Q4

REPORT INFORMATION
  Report Type: 
  Country: None (occurrence: None)
  Receive Date: 20101122
  Receipt Date: 20101102
  Transmission Date: 20110411
  Serious: Yes (Hospitalization)
  Sender: FDA-Public Use
  Company Number: US-BAYER-201023409NA

PATIENT
  Age: 52 Year
  Sex: Female
  Weight: 66 kg

DRUGS (3)
  1. YASMIN [Suspect]
     Indication: MIGRAINE
     Route: 048
     Dates: start: 20070807, end: 20080401
  2. YAZ [Suspect]
     Indication: PRODUCT USED FOR UNKNOWN INDICATION
     Route: 048
     Dates: start: 20070801, end: 20080401
  3. LYBREL [Concomitant]
     Indication: MIGRAINE
     Route: 048

REACTIONS (10)
  - ABDOMINAL PAIN UPPER [None]
  - ABDOMINAL TENDERNESS [None]
  - CHEST PAIN [None]
  - CHOLECYSTITIS ACUTE [None]
  - CHOLELITHIASIS [None]
  - GASTROOESOPHAGEAL REFLUX DISEASE [None]
  - NAUSEA [None]
  - POST PROCEDURAL DISCOMFORT [None]
  - PROCEDURAL PAIN [None]
  - VOMITING [None]
